FAERS Safety Report 6013304-6 (Version None)
Quarter: 2008Q4

REPORT INFORMATION
  Report Type: 
  Country: None (occurrence: None)
  Receive Date: 20081219
  Receipt Date: 20081212
  Transmission Date: 20090506
  Serious: Yes (Other)
  Sender: FDA-Public Use
  Company Number: US-ASTRAZENECA-2008UW27833

PATIENT
  Age: 617 Month
  Sex: Male
  Weight: 55.3 kg

DRUGS (11)
  1. SEROQUEL [Suspect]
     Route: 048
     Dates: end: 20081001
  2. CHANTIX [Suspect]
     Indication: SMOKING CESSATION THERAPY
     Dates: start: 20081001
  3. EFFEXOR [Suspect]
     Dates: end: 20081001
  4. CITALOPRAM [Concomitant]
     Dates: start: 20081001
  5. CLONAZEPAM [Concomitant]
     Dates: start: 20081001
  6. REYATAZ [Concomitant]
  7. EPIVIR [Concomitant]
  8. ACETYLSALICYLIC ACID [Concomitant]
  9. LIPITOR [Concomitant]
  10. LISINOPRIL [Concomitant]
     Route: 048
  11. ABILIFY [Concomitant]

REACTIONS (3)
  - PSYCHIATRIC SYMPTOM [None]
  - VOMITING [None]
  - WEIGHT INCREASED [None]
